FAERS Safety Report 6498261-0 (Version None)
Quarter: 2009Q4

REPORT INFORMATION
  Report Type: 
  Country: None (occurrence: None)
  Receive Date: 20091215
  Receipt Date: 20091203
  Transmission Date: 20100525
  Serious: Yes (Other)
  Sender: FDA-Public Use
  Company Number: B0609103A

PATIENT
  Age: 8 Year
  Sex: Female

DRUGS (6)
  1. MELPHALAN [Suspect]
     Dosage: 50MG PER DAY
     Route: 042
  2. THIOTEPA [Suspect]
  3. IFOSFAMIDE [Suspect]
  4. CARBOPLATIN [Suspect]
  5. ETOPOSIDE [Suspect]
  6. IRINOTECAN HCL [Suspect]

REACTIONS (3)
  - BONE MARROW FAILURE [None]
  - GASTROINTESTINAL DISORDER [None]
  - PAROTITIS [None]
